FAERS Safety Report 9387787 (Version 1)
Quarter: 2013Q3

REPORT INFORMATION
  Report Type: Spontaneous
  Country: GB (occurrence: None)
  Receive Date: 20130703
  Receipt Date: 20130703
  Transmission Date: 20140515
  Serious: Yes (Hospitalization)
  Sender: FDA-Public Use
  Company Number: GB-DEXPHARM-20130382

PATIENT
  Age: 88 Year
  Sex: Male

DRUGS (6)
  1. CLARITHROMYCIN (CLARITHROMYCIN) [Suspect]
     Indication: HELICOBACTER INFECTION
     Route: 048
     Dates: start: 20130522, end: 20130530
  2. ASPIRIN [Concomitant]
  3. DIPYRIDAMOLE [Concomitant]
  4. FELODIPINE [Concomitant]
  5. PERINDOPRIL [Concomitant]
  6. SIMVASTATIN [Concomitant]

REACTIONS (4)
  - Aphasia [None]
  - Confusional state [None]
  - Dysphagia [None]
  - Hypertonia [None]
